FAERS Safety Report 20111564 (Version 2)
Quarter: 2021Q4

REPORT INFORMATION
  Report Type: Spontaneous
  Country: US (occurrence: US)
  Receive Date: 20211125
  Receipt Date: 20211223
  Transmission Date: 20220304
  Serious: No
  Sender: FDA-Public Use
  Company Number: US-BIOVITRUM-2021US11141

PATIENT
  Sex: Female

DRUGS (1)
  1. SYNAGIS [Suspect]
     Active Substance: PALIVIZUMAB
     Indication: Product used for unknown indication

REACTIONS (4)
  - Vomiting [Not Recovered/Not Resolved]
  - Feeding intolerance [Not Recovered/Not Resolved]
  - Flatulence [Not Recovered/Not Resolved]
  - Weight gain poor [Not Recovered/Not Resolved]
